FAERS Safety Report 6303445-8 (Version None)
Quarter: 2009Q3

REPORT INFORMATION
  Report Type: 
  Country: None (occurrence: None)
  Receive Date: 20090810
  Receipt Date: 20090806
  Transmission Date: 20100115
  Serious: No
  Sender: FDA-Public Use
  Company Number: US-B.I. PHARMACEUTICALS,INC./RIDGEFIELD-2009-BP-08607BP

PATIENT
  Age: 79 Year
  Sex: Male

DRUGS (1)
  1. AGGRENOX [Suspect]
     Dates: start: 20090715, end: 20090723

REACTIONS (1)
  - HEADACHE [None]
